FAERS Safety Report 15095911 (Version 1)
Quarter: 2018Q3

REPORT INFORMATION
  Report Type: Spontaneous
  Country: US (occurrence: US)
  Receive Date: 20180702
  Receipt Date: 20180702
  Transmission Date: 20181010
  Serious: No
  Sender: FDA-Public Use
  Company Number: US-GLENMARK PHARMACEUTICALS-2017GMK028803

PATIENT

DRUGS (1)
  1. MUPIROCIN. [Suspect]
     Active Substance: MUPIROCIN
     Indication: LIP DISORDER
     Dosage: UNK
     Route: 061
     Dates: end: 20170908

REACTIONS (4)
  - Inability to afford medication [Unknown]
  - Incorrect drug dosage form administered [Unknown]
  - Drug dispensing error [Unknown]
  - Product use in unapproved indication [Unknown]
